FAERS Safety Report 10223869 (Version 3)
Quarter: 2014Q2

REPORT INFORMATION
  Report Type: Spontaneous
  Country: GR (occurrence: GR)
  Receive Date: 20140609
  Receipt Date: 20140630
  Transmission Date: 20141212
  Serious: Yes (Hospitalization, Other)
  Sender: FDA-Public Use
  Company Number: GR-JNJFOC-20140602470

PATIENT
  Age: 78 Year
  Sex: Male

DRUGS (1)
  1. XARELTO [Suspect]
     Indication: PRODUCT USED FOR UNKNOWN INDICATION
     Route: 048
     Dates: start: 201403, end: 201405

REACTIONS (6)
  - Renal failure [Recovering/Resolving]
  - Haematuria [Recovering/Resolving]
  - Prostatectomy [Recovered/Resolved]
  - Anaemia [Recovering/Resolving]
  - Hyponatraemia [Recovering/Resolving]
  - Syncope [Recovering/Resolving]
